FAERS Safety Report 17347568 (Version 1)
Quarter: 2020Q1

REPORT INFORMATION
  Report Type: Report from Study
  Country: CO (occurrence: CO)
  Receive Date: 20200130
  Receipt Date: 20200130
  Transmission Date: 20200409
  Serious: Yes (Hospitalization, Other)
  Sender: FDA-Public Use
  Company Number: CO-ROCHE-2462929

PATIENT
  Sex: Male

DRUGS (1)
  1. MABTHERA [Suspect]
     Active Substance: RITUXIMAB
     Indication: PRODUCT USED FOR UNKNOWN INDICATION
     Route: 065

REACTIONS (13)
  - Thrombosis [Unknown]
  - Joint swelling [Unknown]
  - Pain in extremity [Unknown]
  - Arthralgia [Unknown]
  - Drug intolerance [Unknown]
  - Gait inability [Unknown]
  - Epilepsy [Unknown]
  - Malaise [Unknown]
  - Memory impairment [Unknown]
  - Seizure [Unknown]
  - Cerebral ischaemia [Unknown]
  - Muscular weakness [Unknown]
  - Pneumonia [Unknown]
